FAERS Safety Report 6255663-5 (Version None)
Quarter: 2009Q3

REPORT INFORMATION
  Report Type: 
  Country: None (occurrence: None)
  Receive Date: 20090701
  Receipt Date: 20090618
  Transmission Date: 20100115
  Serious: Yes (Hospitalization)
  Sender: FDA-Public Use
  Company Number: 090187

PATIENT
  Sex: Female

DRUGS (1)
  1. HALFLYTELY [Suspect]
     Indication: COLONOSCOPY
     Dates: start: 20050822

REACTIONS (4)
  - CARDIO-RESPIRATORY ARREST [None]
  - CONSTIPATION [None]
  - OESOPHAGEAL RUPTURE [None]
  - SWELLING [None]
